FAERS Safety Report 8566016 (Version 3)
Quarter: 2013Q3

REPORT INFORMATION
  Report Type: Report from Study
  Country: FR (occurrence: FR)
  Receive Date: 20120516
  Receipt Date: 20130719
  Transmission Date: 20140515
  Serious: Yes (Death, Other)
  Sender: FDA-Public Use
  Company Number: FR-009507513-1205FRA00067

PATIENT
  Sex: Female
  Weight: 99 kg

DRUGS (3)
  1. SITAGLIPTIN PHOSPHATE [Suspect]
     Indication: TYPE 2 DIABETES MELLITUS
     Dosage: 100 MG, QD
     Route: 048
     Dates: start: 20100407, end: 20120310
  2. STAGID [Concomitant]
     Dosage: 700 MG, TID
     Route: 048
  3. COUMADIN [Suspect]
     Dosage: UNK
     Dates: start: 20110407, end: 20120310

REACTIONS (1)
  - Cerebrovascular accident [Fatal]
